FAERS Safety Report 24603600 (Version 1)
Quarter: 2024Q4

REPORT INFORMATION
  Report Type: Spontaneous
  Country: US (occurrence: None)
  Receive Date: 20241109
  Receipt Date: 20241109
  Transmission Date: 20250115
  Serious: Yes (Hospitalization, Disabling)
  Sender: Public
  Company Number: None

PATIENT
  Age: 76 Year
  Sex: Male
  Weight: 110.25 kg

DRUGS (13)
  1. OZEMPIC [Suspect]
     Active Substance: SEMAGLUTIDE
     Indication: Glycosylated haemoglobin decreased
     Dosage: 1 PREFILLED PEN ONCE PER WEEK SUBCUTANEOUS
     Route: 058
     Dates: start: 20230215, end: 20240820
  2. AMLODIPINE 10mg [Concomitant]
  3. ATVORSTATIN 40mg [Concomitant]
  4. BUPROPION [Concomitant]
     Active Substance: BUPROPION
  5. GABAPENTIN 600mg [Concomitant]
  6. GEMTESA 75mg [Concomitant]
  7. HYDROXYZINE 25 mg [Concomitant]
  8. LEVOTHYROXINE SODIUM [Concomitant]
     Active Substance: LEVOTHYROXINE SODIUM
  9. LOSARTAN 50mg [Concomitant]
  10. SERTRALINE HYDROCHLORIDE [Concomitant]
     Active Substance: SERTRALINE HYDROCHLORIDE
  11. TAMSULOSIN 0.4mg [Concomitant]
  12. TRAZADONE 150mg [Concomitant]
  13. ASPRIN 81mg [Concomitant]

REACTIONS (2)
  - Visual impairment [None]
  - Pancreatitis acute [None]

NARRATIVE: CASE EVENT DATE: 20240823
